FAERS Safety Report 7401504-X (Version None)
Quarter: 2011Q2

REPORT INFORMATION
  Report Type: 
  Country: None (occurrence: None)
  Receive Date: 20110408
  Receipt Date: 20110331
  Transmission Date: 20111010
  Serious: Yes (Hospitalization)
  Sender: FDA-Public Use
  Company Number: US-BIOGENIDEC-2009BI024777

PATIENT
  Age: 36 Year
  Sex: Female

DRUGS (1)
  1. TYSABRI [Suspect]
     Indication: MULTIPLE SCLEROSIS
     Route: 042
     Dates: start: 20080321, end: 20100506

REACTIONS (13)
  - MIGRAINE [None]
  - DEPRESSION [None]
  - COMA [None]
  - HYPOAESTHESIA [None]
  - COORDINATION ABNORMAL [None]
  - PARAESTHESIA [None]
  - ANXIETY [None]
  - ORAL INFECTION [None]
  - HEMIPLEGIA [None]
  - ASTHENIA [None]
  - THROMBOSIS [None]
  - MULTIPLE SCLEROSIS RELAPSE [None]
  - MENTAL IMPAIRMENT [None]
